FAERS Safety Report 24284991 (Version 1)
Quarter: 2024Q3

REPORT INFORMATION
  Report Type: Spontaneous
  Country: US (occurrence: None)
  Receive Date: 20240901
  Receipt Date: 20240901
  Transmission Date: 20241016
  Serious: Yes (Hospitalization)
  Sender: Public
  Company Number: None

PATIENT
  Age: 37 Year
  Sex: Female

DRUGS (2)
  1. HYRIMOZ [Suspect]
     Active Substance: ADALIMUMAB-ADAZ
     Indication: Crohn^s disease
     Dosage: 40MG  Q14DAYS SQ?
     Route: 058
     Dates: start: 202404
  2. PREDNISONE [Concomitant]

REACTIONS (2)
  - Small intestinal obstruction [None]
  - Crohn^s disease [None]

NARRATIVE: CASE EVENT DATE: 20240704
